FAERS Safety Report 8774180 (Version 2)
Quarter: 2012Q4

REPORT INFORMATION
  Report Type: 
  Country: US (occurrence: US)
  Receive Date: 20120907
  Receipt Date: 20121115
  Transmission Date: 20130627
  Serious: No
  Sender: FDA-Public Use
  Company Number: US-009507513-1208USA009991

PATIENT
  Sex: Female
  Weight: 49.89 kg

DRUGS (2)
  1. CLARITIN [Suspect]
     Indication: SNEEZING
     Dosage: UNK, Unknown
     Route: 048
  2. CLARITIN [Suspect]
     Indication: RHINORRHOEA

REACTIONS (1)
  - Drug ineffective [Unknown]
